FAERS Safety Report 8507418 (Version 10)
Quarter: 2015Q2

REPORT INFORMATION
  Report Type: Spontaneous
  Country: US (occurrence: US)
  Receive Date: 20120412
  Receipt Date: 20150513
  Transmission Date: 20150821
  Serious: Yes (Hospitalization, Other)
  Sender: FDA-Public Use
  Company Number: US-ASTRAZENECA-2011SE40512

PATIENT
  Age: 75 Year
  Sex: Female
  Weight: 78.5 kg

DRUGS (21)
  1. NEXIUM [Suspect]
     Active Substance: ESOMEPRAZOLE MAGNESIUM
     Indication: GASTROOESOPHAGEAL REFLUX DISEASE
     Route: 048
  2. NEXIUM [Suspect]
     Active Substance: ESOMEPRAZOLE MAGNESIUM
     Indication: GASTROOESOPHAGEAL REFLUX DISEASE
     Route: 048
  3. PRILOSEC OTC [Suspect]
     Active Substance: OMEPRAZOLE MAGNESIUM
     Route: 048
  4. ASPIRIN (BAYER) [Concomitant]
     Indication: ANTICOAGULANT THERAPY
     Route: 048
  5. VITAMIN D [Concomitant]
     Active Substance: CHOLECALCIFEROL
  6. TYLENOL EXTRA STRENGTH [Concomitant]
     Active Substance: ACETAMINOPHEN
     Indication: PYREXIA
  7. D3 [Concomitant]
     Active Substance: 25-HYDROXYCHOLECALCIFEROL, 5-TRANS-
     Indication: TOOTH EROSION
     Route: 048
  8. AMLODIPINE [Concomitant]
     Active Substance: AMLODIPINE BESYLATE
     Indication: HYPERTENSION
     Route: 048
  9. TYLENOL EXTRA STRENGTH [Concomitant]
     Active Substance: ACETAMINOPHEN
     Indication: PAIN
  10. BENZONATATE. [Concomitant]
     Active Substance: BENZONATATE
     Indication: COUGH
  11. NEXIUM [Suspect]
     Active Substance: ESOMEPRAZOLE MAGNESIUM
     Indication: GASTROOESOPHAGEAL REFLUX DISEASE
     Route: 048
  12. NEXIUM [Suspect]
     Active Substance: ESOMEPRAZOLE MAGNESIUM
     Indication: GASTROOESOPHAGEAL REFLUX DISEASE
     Route: 048
  13. IBUPROFEN. [Concomitant]
     Active Substance: IBUPROFEN
     Dosage: AS REQUIRED
  14. ASPIRIN (BAYER) [Concomitant]
     Indication: MYOCARDIAL INFARCTION
     Route: 048
  15. NEXIUM [Suspect]
     Active Substance: ESOMEPRAZOLE MAGNESIUM
     Indication: GASTROOESOPHAGEAL REFLUX DISEASE
     Route: 048
     Dates: end: 201408
  16. NEXIUM [Suspect]
     Active Substance: ESOMEPRAZOLE MAGNESIUM
     Indication: GASTROOESOPHAGEAL REFLUX DISEASE
     Dosage: OTC, 20 MG 2 DF,
     Route: 048
  17. VITAMIN E [Concomitant]
     Active Substance: .ALPHA.-TOCOPHEROL
  18. D3 [Concomitant]
     Active Substance: 25-HYDROXYCHOLECALCIFEROL, 5-TRANS-
     Indication: IMMUNE SYSTEM DISORDER
     Route: 048
  19. SEROQUEL XR [Suspect]
     Active Substance: QUETIAPINE FUMARATE
     Route: 048
     Dates: end: 2010
  20. LORAZEPAM. [Concomitant]
     Active Substance: LORAZEPAM
     Indication: ANXIETY
     Route: 048
  21. ASPIRIN (BAYER) [Concomitant]
     Indication: CARDIAC DISORDER
     Route: 048

REACTIONS (36)
  - Thrombosis [Unknown]
  - Hypertension [Unknown]
  - Epigastric discomfort [Unknown]
  - Headache [Unknown]
  - Emotional disorder [Unknown]
  - Angina pectoris [Unknown]
  - Rib fracture [Unknown]
  - Abdominal distension [Unknown]
  - Overweight [Unknown]
  - Nausea [Unknown]
  - Cataract [Unknown]
  - Malaise [Unknown]
  - Gastrooesophageal reflux disease [Unknown]
  - Nasal mucosal disorder [Unknown]
  - Back pain [Unknown]
  - Sensitivity of teeth [Unknown]
  - Dyspnoea [Unknown]
  - Insomnia [Unknown]
  - Rash [Unknown]
  - Drug ineffective for unapproved indication [Unknown]
  - Hyperphagia [Unknown]
  - Hypophagia [Unknown]
  - Off label use [Unknown]
  - Intentional product misuse [Unknown]
  - Pain in jaw [Unknown]
  - Anxiety [Unknown]
  - Feeding disorder [Unknown]
  - Vomiting [Unknown]
  - Viral infection [Unknown]
  - Drug dose omission [Not Recovered/Not Resolved]
  - Sinusitis [Unknown]
  - Neck pain [Unknown]
  - Musculoskeletal pain [Unknown]
  - Asthenia [Unknown]
  - Abdominal pain upper [Not Recovered/Not Resolved]
  - Dizziness [Unknown]

NARRATIVE: CASE EVENT DATE: 2012
